FAERS Safety Report 9305605 (Version 2)
Quarter: 2013Q4

REPORT INFORMATION
  Report Type: Spontaneous
  Country: DE (occurrence: None)
  Receive Date: 20130513
  Receipt Date: 20131114
  Transmission Date: 20140711
  Serious: Yes (Hospitalization)
  Sender: FDA-Public Use
  Company Number: 2013035776

PATIENT
  Age: 83 Year
  Sex: Female

DRUGS (5)
  1. PRIVIGEN (IMMUNE GLOBULIN INTRAVENOUS (HUMAN) 10% LIQUID) [Suspect]
     Indication: NON-HODGKIN^S LYMPHOMA
     Dosage: 200 ML TOTAL, INTRAVENOUS (NOT OTHERWISE SPECIFIED)?
     Route: 042
     Dates: start: 20130411
  2. ATACAND [Concomitant]
  3. DIGIMERCK (DIGITOXIN) [Concomitant]
  4. AMLODPINE (AMLODIPINE) [Concomitant]
  5. LEVOTHYROXINE (LEVOTHYROXINE) [Concomitant]

REACTIONS (2)
  - Hypersensitivity [None]
  - General physical health deterioration [None]
